FAERS Safety Report 9169290 (Version 1)
Quarter: 2013Q1

REPORT INFORMATION
  Report Type: Spontaneous
  Country: US (occurrence: US)
  Receive Date: 20130318
  Receipt Date: 20130318
  Transmission Date: 20140127
  Serious: Yes (Other)
  Sender: FDA-Public Use
  Company Number: US-US-EMD SERONO, INC.-7048917

PATIENT
  Sex: Female
  Weight: 104 kg

DRUGS (3)
  1. REBIF [Suspect]
     Indication: MULTIPLE SCLEROSIS
     Route: 058
     Dates: start: 20101122, end: 201212
  2. METFORMIN [Concomitant]
     Indication: TYPE 2 DIABETES MELLITUS
  3. NOVOLOG [Concomitant]
     Indication: TYPE 2 DIABETES MELLITUS

REACTIONS (3)
  - Hyperparathyroidism primary [Recovering/Resolving]
  - Blood glucose abnormal [Recovering/Resolving]
  - Injection site pain [Unknown]
